FAERS Safety Report 21170934 (Version 1)
Quarter: 2022Q3

REPORT INFORMATION
  Report Type: Report from Study
  Country: DE (occurrence: None)
  Receive Date: 20220804
  Receipt Date: 20220804
  Transmission Date: 20221027
  Serious: Yes (Death)
  Sender: FDA-Public Use
  Company Number: DE-ROCHE-3069917

PATIENT
  Age: 71 Year
  Sex: Female
  Weight: 57 kg

DRUGS (6)
  1. ATEZOLIZUMAB [Suspect]
     Active Substance: ATEZOLIZUMAB
     Indication: Ovarian cancer recurrent
     Dosage: ON 24/MAR/2022, SHE RECEIVED MOST RECENT DOSE PRIOR TO EVENT
     Route: 041
     Dates: start: 20210622
  2. BEVACIZUMAB [Suspect]
     Active Substance: BEVACIZUMAB
     Indication: Ovarian cancer recurrent
     Dosage: ON 24/MAR/2022, SHE RECEIVED MOST RECENT DOSE PRIOR TO EVENT
     Route: 042
     Dates: start: 20210622
  3. PACLITAXEL [Suspect]
     Active Substance: PACLITAXEL
     Indication: Ovarian cancer recurrent
     Dosage: ON 18/NOV/2021, SHE RECEIVED MOST RECENT DOSE PRIOR TO EVENT
     Route: 042
     Dates: start: 20210622
  4. CANDEPRES HCT [Concomitant]
     Indication: Hypertension
     Route: 048
     Dates: start: 20210829
  5. AMLODIPINE [Concomitant]
     Active Substance: AMLODIPINE BESYLATE
     Indication: Hypertension
     Route: 048
     Dates: start: 20211008
  6. ALLOPURINOL [Concomitant]
     Active Substance: ALLOPURINOL
     Route: 048
     Dates: start: 20211106

REACTIONS (1)
  - Cardiac hypertrophy [Fatal]

NARRATIVE: CASE EVENT DATE: 20220402
